FAERS Safety Report 11128285 (Version 2)
Quarter: 2015Q2

REPORT INFORMATION
  Report Type: Spontaneous
  Country: GB (occurrence: GB)
  Receive Date: 20150521
  Receipt Date: 20150528
  Transmission Date: 20150821
  Serious: Yes (Life-Threatening)
  Sender: FDA-Public Use
  Company Number: GB-PFIZER INC-2015168012

PATIENT
  Age: 58 Year
  Sex: Male
  Weight: 91.5 kg

DRUGS (3)
  1. EPIRUBICIN HCL [Suspect]
     Active Substance: EPIRUBICIN HYDROCHLORIDE
     Indication: GASTRIC CANCER
     Dosage: 80 MG, CYCLIC ( (CYCLE 5, LAST DOSE PRIOR TO SAE 30APR2010)
     Route: 042
     Dates: start: 20091002
  2. CISPLATIN. [Suspect]
     Active Substance: CISPLATIN
     Indication: GASTRIC CANCER
     Dosage: 126 MG, CYCLIC (CYCLE 5, LAST DOSE PRIOR TO SAE 30APR2010)
     Route: 042
     Dates: start: 20091002
  3. XELODA [Suspect]
     Active Substance: CAPECITABINE
     Indication: GASTRIC CANCER
     Dosage: 2500 MG, CYCLIC  (CYCLE 5, LAST DOSE PRIOR TO SAE 30APR2010)
     Route: 048
     Dates: start: 20091002

REACTIONS (2)
  - Chest pain [Recovered/Resolved]
  - Dyspnoea [Unknown]

NARRATIVE: CASE EVENT DATE: 20100421
